FAERS Safety Report 12624376 (Version 1)
Quarter: 2016Q3

REPORT INFORMATION
  Report Type: Spontaneous
  Country: IT (occurrence: IT)
  Receive Date: 20160805
  Receipt Date: 20160805
  Transmission Date: 20161109
  Serious: Yes (Other)
  Sender: FDA-Public Use
  Company Number: IT-009507513-1608ITA000782

PATIENT
  Age: 49 Year
  Sex: Female

DRUGS (3)
  1. REBETOL [Suspect]
     Active Substance: RIBAVIRIN
     Indication: HEPATITIS C
     Dosage: 1000 MG, DAILY
     Route: 048
     Dates: start: 20160606, end: 20160614
  2. PEGINTRON [Suspect]
     Active Substance: PEGINTERFERON ALFA-2B
     Indication: HEPATITIS C
     Dosage: 100 MICROGRAM, CYCLICAL
     Route: 058
     Dates: start: 20160606, end: 20160614
  3. SIMEPREVIR [Suspect]
     Active Substance: SIMEPREVIR
     Indication: HEPATITIS C
     Dosage: 150 MG, DAILY
     Route: 048
     Dates: start: 20160606, end: 20160614

REACTIONS (1)
  - Vertigo CNS origin [Unknown]

NARRATIVE: CASE EVENT DATE: 20160614
